FAERS Safety Report 15058732 (Version 15)
Quarter: 2020Q3

REPORT INFORMATION
  Report Type: Spontaneous
  Country: ES (occurrence: ES)
  Receive Date: 20180625
  Receipt Date: 20200731
  Transmission Date: 20201102
  Serious: Yes (Death, Hospitalization, Other)
  Sender: FDA-Public Use
  Company Number: ES-MYLANLABS-2018M1046084

PATIENT
  Age: 62 Year
  Sex: Male

DRUGS (45)
  1. QUETIAPINE. [Interacting]
     Active Substance: QUETIAPINE
     Dosage: 400 MG, UNK
  2. METFORMIN [Interacting]
     Active Substance: METFORMIN HYDROCHLORIDE
     Dosage: 850 MG, BID (0?1?1?0) CHRONIC
     Route: 048
  3. VALPROIC ACID. [Interacting]
     Active Substance: VALPROIC ACID
     Dosage: 1500 MG, TID (1?1?1?0)
  4. SALMETEROL/FLUTICASONE CASCAN [Interacting]
     Active Substance: FLUTICASONE PROPIONATE\SALMETEROL XINAFOATE
     Dosage: 1 DOSAGE FORMS DAILY; INTERVAL 1?0?1?0?2 INHALACIONES
     Route: 048
  5. LEVOTHYROXINE. [Concomitant]
     Active Substance: LEVOTHYROXINE
     Indication: HYPOTHYROIDISM
     Dosage: 3?0?0?0
  6. HALOPERIDOL. [Interacting]
     Active Substance: HALOPERIDOL
     Dosage: UNK
  7. QUETIAPINE. [Interacting]
     Active Substance: QUETIAPINE
     Dosage: 400 MG, TID (1?1?1?0) CHRONIC
     Route: 065
  8. LORATADINE. [Interacting]
     Active Substance: LORATADINE
     Dosage: 10 MG, QD, (1?0?0?0) CHRONIC
     Route: 048
  9. VALPROIC ACID. [Interacting]
     Active Substance: VALPROIC ACID
     Dosage: 500 MG, TID (1?1?1?0)CHRONIC
     Route: 065
  10. HALOPERIDOL. [Interacting]
     Active Substance: HALOPERIDOL
     Dosage: 5 MG, Q8H (1?1?1?0)
     Route: 065
  11. VALPROIC ACID. [Interacting]
     Active Substance: VALPROIC ACID
     Indication: EPILEPSY
     Dosage: 500 MG, TID
  12. LEVOTHYROXINE. [Suspect]
     Active Substance: LEVOTHYROXINE
     Dosage: 150 ?G, DAILY, (3?0?0?0) CHRONIC
     Route: 065
  13. SALMETEROL/FLUTICASONE CASCAN [Interacting]
     Active Substance: FLUTICASONE PROPIONATE\SALMETEROL XINAFOATE
     Dosage: 4 DOSAGE FORM, QD
     Route: 055
  14. TIOTROPIUM [Suspect]
     Active Substance: TIOTROPIUM
     Indication: CHRONIC OBSTRUCTIVE PULMONARY DISEASE
     Dosage: 2.5 ?G/PULSE
  15. LORATADINE. [Interacting]
     Active Substance: LORATADINE
     Indication: RHINITIS
     Dosage: 10 MG, TOTAL
     Route: 048
  16. TIOTROPIUM [Suspect]
     Active Substance: TIOTROPIUM
     Dosage: 5 ?G, QD (2 PUFFS)
     Route: 065
  17. LEVOTHYROXINE. [Concomitant]
     Active Substance: LEVOTHYROXINE
     Dosage: 3 DF, QD
  18. METFORMIN [Concomitant]
     Active Substance: METFORMIN HYDROCHLORIDE
     Dosage: 850 MG, BID (0?1?1?0)
     Route: 065
  19. HALOPERIDOL. [Interacting]
     Active Substance: HALOPERIDOL
     Indication: NERVOUS SYSTEM DISORDER
     Dosage: 45 MG, QD (10?20 MG)
  20. QUETIAPINA                         /01270901/ [Concomitant]
     Active Substance: QUETIAPINE
     Indication: SCHIZOPHRENIA
     Dosage: 400 MILLIGRAM, TID (1?1?1?0)
  21. METFORMIN [Interacting]
     Active Substance: METFORMIN HYDROCHLORIDE
     Indication: TYPE 2 DIABETES MELLITUS
     Dosage: 3400 MG, QD, PER DAY
     Route: 048
  22. VALPROIC ACID. [Interacting]
     Active Substance: VALPROIC ACID
     Dosage: 500 MG, Q8H
  23. METFORMIN [Concomitant]
     Active Substance: METFORMIN HYDROCHLORIDE
     Indication: TYPE 2 DIABETES MELLITUS
     Dosage: 850 MG, BID, 850 MG, BID (0?1?1?0) CHRONIC
     Route: 048
  24. VALPROIC ACID. [Concomitant]
     Active Substance: VALPROIC ACID
     Dosage: 500 MILLIGRAM, 1?1?1?0
  25. LEVOTHYROXINE. [Suspect]
     Active Substance: LEVOTHYROXINE
     Dosage: 150 G, QD (100?200 MG)
     Route: 065
  26. CLONAZEPAM. [Interacting]
     Active Substance: CLONAZEPAM
     Dosage: 8 MG, QD, PER DAY
  27. CLONAZEPAM. [Interacting]
     Active Substance: CLONAZEPAM
     Dosage: 0.5 MG, QID (1?1?1?1 CRONICA) (2 MG, QD)
     Route: 065
  28. LEVOTHYROXINE. [Concomitant]
     Active Substance: LEVOTHYROXINE
     Dosage: 450 ?G, QD (100? 200 MG)
  29. SALMETEROL/FLUTICASONE CASCAN [Concomitant]
     Active Substance: FLUTICASONE PROPIONATE\SALMETEROL XINAFOATE
     Indication: ASTHMA
     Dosage: 4 DF, QD
     Route: 055
  30. HALOPERIDOL. [Interacting]
     Active Substance: HALOPERIDOL
     Indication: NEUROLEPTIC MALIGNANT SYNDROME
     Dosage: 15 MG, QD
     Route: 065
  31. LEVOTHYROXINE. [Suspect]
     Active Substance: LEVOTHYROXINE
     Indication: HYPOTHYROIDISM
     Dosage: 450 ?G, QD, PER DAY
  32. CLONAZEPAM. [Interacting]
     Active Substance: CLONAZEPAM
     Indication: EPILEPSY
     Dosage: 0.5 MG, Q6H
  33. SALMETEROL/FLUTICASONE CASCAN [Interacting]
     Active Substance: FLUTICASONE PROPIONATE\SALMETEROL XINAFOATE
     Indication: ASTHMA
     Dosage: 1 DF, BID
     Route: 048
  34. SALMETEROL/FLUTICASONE CASCAN [Interacting]
     Active Substance: FLUTICASONE PROPIONATE\SALMETEROL XINAFOATE
     Dosage: 2 INH X 2 TIMES A DAY (1?0?1?0)
     Route: 055
  35. TIOTROPIUM [Suspect]
     Active Substance: TIOTROPIUM
     Dosage: 25 ?G, QD 1X1
  36. METFORMIN [Concomitant]
     Active Substance: METFORMIN HYDROCHLORIDE
     Dosage: 3400 MG, QD (3 G/DAY)
  37. METFORMIN [Concomitant]
     Active Substance: METFORMIN HYDROCHLORIDE
     Dosage: 1700 MG, BID
  38. HALOPERIDOL. [Interacting]
     Active Substance: HALOPERIDOL
     Indication: PSYCHOTIC DISORDER
     Dosage: 15 MG, 8 TIMES IN DAY
  39. QUETIAPINE. [Suspect]
     Active Substance: QUETIAPINE
     Indication: SCHIZOPHRENIA
     Dosage: 1200 MG, QD
     Route: 065
  40. QUETIAPINE. [Interacting]
     Active Substance: QUETIAPINE
     Indication: MAJOR DEPRESSION
     Dosage: 3600 MG, QD (400 TO 800 MG/DAY)
  41. QUETIAPINE. [Interacting]
     Active Substance: QUETIAPINE
     Indication: DEPRESSION
     Dosage: 400 MG, Q8H
     Route: 065
  42. LORATADINE. [Interacting]
     Active Substance: LORATADINE
     Indication: RHINITIS ALLERGIC
     Dosage: 10 MG, QD, PER DAY
     Route: 048
  43. VALPROIC ACID. [Interacting]
     Active Substance: VALPROIC ACID
     Indication: MANIA
     Dosage: 4500 MG, QD (1500 MG, 3X PER DAY)
  44. SALMETEROL/FLUTICASONE CASCAN [Concomitant]
     Active Substance: FLUTICASONE PROPIONATE\SALMETEROL XINAFOATE
     Dosage: 1 DF, UNK (1?0?1?0.2 INHALACIONES)
     Route: 048
  45. TIOTROPIO [Concomitant]
     Active Substance: TIOTROPIUM BROMIDE
     Indication: CHRONIC OBSTRUCTIVE PULMONARY DISEASE
     Dosage: QD (1?0?0?0)

REACTIONS (14)
  - Coma [Fatal]
  - Condition aggravated [Unknown]
  - Hypothyroidism [Unknown]
  - Type 2 diabetes mellitus [Unknown]
  - Pruritus [Unknown]
  - Cardiac failure [Fatal]
  - Hyperprolactinaemia [Fatal]
  - Off label use [Fatal]
  - Prescribed overdose [Fatal]
  - Intentional product misuse [Unknown]
  - Ventricular fibrillation [Fatal]
  - Drug interaction [Fatal]
  - Loss of consciousness [Not Recovered/Not Resolved]
  - Medication error [Unknown]
